FAERS Safety Report 7617589-1 (Version None)
Quarter: 2011Q3

REPORT INFORMATION
  Report Type: 
  Country: None (occurrence: None)
  Receive Date: 20110718
  Receipt Date: 20110705
  Transmission Date: 20111222
  Serious: Yes (Other)
  Sender: FDA-Public Use
  Company Number: US-JNJFOC-20110703088

PATIENT
  Age: 39 Year
  Sex: Male

DRUGS (4)
  1. INFLIXIMAB, RECOMBINANT [Suspect]
     Indication: BEHCET'S SYNDROME
     Route: 042
  2. COLCHICINE [Concomitant]
     Indication: BEHCET'S SYNDROME
  3. CYCLOPHOSPHAMIDE [Concomitant]
     Indication: BEHCET'S SYNDROME
  4. CORTICOSTEROIDS [Concomitant]
     Indication: BEHCET'S SYNDROME

REACTIONS (2)
  - BEHCET'S SYNDROME [None]
  - DRUG INEFFECTIVE FOR UNAPPROVED INDICATION [None]
